FAERS Safety Report 12328467 (Version 3)
Quarter: 2016Q3

REPORT INFORMATION
  Report Type: Spontaneous
  Country: US (occurrence: US)
  Receive Date: 20160503
  Receipt Date: 20160808
  Transmission Date: 20161109
  Serious: No
  Sender: FDA-Public Use
  Company Number: US-BEH-2015047890

PATIENT
  Sex: Female

DRUGS (1)
  1. HIZENTRA [Suspect]
     Active Substance: HUMAN IMMUNOGLOBULIN G

REACTIONS (4)
  - Infusion site swelling [Unknown]
  - Infusion site induration [Unknown]
  - Injection site swelling [Unknown]
  - Peripheral swelling [Unknown]
